FAERS Safety Report 9475100 (Version 2)
Quarter: 2013Q3

REPORT INFORMATION
  Report Type: Report from Study
  Country: BR (occurrence: BR)
  Receive Date: 20130824
  Receipt Date: 20130824
  Transmission Date: 20140515
  Serious: Yes (Hospitalization)
  Sender: FDA-Public Use
  Company Number: BR-ROCHE-1234183

PATIENT
  Sex: Male
  Weight: 84 kg

DRUGS (5)
  1. ACTEMRA [Suspect]
     Indication: RHEUMATOID ARTHRITIS
     Route: 042
     Dates: start: 20130301, end: 20130513
  2. ARAVA [Concomitant]
  3. ATENOLOL [Concomitant]
     Indication: BLOOD PRESSURE INCREASED
  4. METICORTEN [Concomitant]
  5. MIOFLEX (BRAZIL) [Concomitant]

REACTIONS (3)
  - Local swelling [Unknown]
  - Toxicity to various agents [Unknown]
  - Pain [Unknown]
